FAERS Safety Report 4674436-8 (Version None)
Quarter: 2005Q2

REPORT INFORMATION
  Report Type: 
  Country: None (occurrence: None)
  Receive Date: 20050524
  Receipt Date: 20050506
  Transmission Date: 20051028
  Serious: Yes (Hospitalization, Other)
  Sender: FDA-Public Use
  Company Number: USA050597494

PATIENT
  Age: 77 Year
  Sex: Female

DRUGS (2)
  1. HUMULIN N [Suspect]
     Indication: DIABETES MELLITUS
     Dates: start: 20030101
  2. HUMULIN R [Suspect]
     Indication: DIABETES MELLITUS
     Dates: start: 20030101

REACTIONS (11)
  - ABDOMINAL PAIN UPPER [None]
  - BLOOD GLUCOSE INCREASED [None]
  - CONSTIPATION [None]
  - DIARRHOEA [None]
  - DYSPHAGIA [None]
  - HYPERTENSION [None]
  - HYPOGLYCAEMIA [None]
  - INFECTION [None]
  - INSOMNIA [None]
  - ORAL INTAKE REDUCED [None]
  - PYREXIA [None]
